FAERS Safety Report 11721214 (Version 2)
Quarter: 2016Q1

REPORT INFORMATION
  Report Type: Spontaneous
  Country: US (occurrence: US)
  Receive Date: 20151110
  Receipt Date: 20160202
  Transmission Date: 20160525
  Serious: Yes (Death, Hospitalization, Disabling)
  Sender: FDA-Public Use
  Company Number: US-ENDO PHARMACEUTICALS INC.-2015-003968

PATIENT
  Age: 66 Year
  Sex: Male
  Weight: 90.8 kg

DRUGS (4)
  1. AXIRON [Suspect]
     Active Substance: TESTOSTERONE
     Indication: ANDROGEN REPLACEMENT THERAPY
     Dosage: ^1 PUMP PER ARM ONCE A DAY^
     Route: 065
     Dates: start: 201303, end: 201305
  2. ANDROGEL [Suspect]
     Active Substance: TESTOSTERONE
     Indication: ANDROGEN REPLACEMENT THERAPY
     Dosage: ^TWO PUMPS PER DAY^
     Route: 065
     Dates: start: 201208, end: 201210
  3. TESTOPEL [Suspect]
     Active Substance: TESTOSTERONE
     Indication: ANDROGEN REPLACEMENT THERAPY
     Dosage: ^12 PELLETS INJECTED^
     Route: 058
     Dates: start: 201210, end: 201303
  4. TESTOPEL [Suspect]
     Active Substance: TESTOSTERONE
     Dosage: ^12 PELLETS INJECTED^
     Route: 058
     Dates: start: 201305, end: 201312

REACTIONS (5)
  - Cardiac arrest [Fatal]
  - Brain injury [Fatal]
  - Joint injury [Not Recovered/Not Resolved]
  - Coronary artery disease [Unknown]
  - Acute myocardial infarction [Unknown]

NARRATIVE: CASE EVENT DATE: 2013
